FAERS Safety Report 24992447 (Version 1)
Quarter: 2025Q1

REPORT INFORMATION
  Report Type: Report from Study
  Country: US (occurrence: US)
  Receive Date: 20250220
  Receipt Date: 20250220
  Transmission Date: 20250409
  Serious: Yes (Other)
  Sender: ABBVIE
  Company Number: US-ABBVIE-6137680

PATIENT
  Age: 59 Year
  Sex: Female

DRUGS (1)
  1. RINVOQ [Suspect]
     Active Substance: UPADACITINIB
     Indication: Psoriatic arthropathy
     Route: 048
     Dates: start: 20240408

REACTIONS (3)
  - Nerve block [Unknown]
  - Headache [Recovering/Resolving]
  - Neck injury [Unknown]

NARRATIVE: CASE EVENT DATE: 20241201
